APPROVED DRUG PRODUCT: LEVOCETIRIZINE DIHYDROCHLORIDE
Active Ingredient: LEVOCETIRIZINE DIHYDROCHLORIDE
Strength: 5MG
Dosage Form/Route: TABLET;ORAL
Application: A091264 | Product #001 | TE Code: AB
Applicant: HETERO LABS LTD UNIT III
Approved: Jun 29, 2012 | RLD: No | RS: No | Type: RX